FAERS Safety Report 20789953 (Version 6)
Quarter: 2022Q2

REPORT INFORMATION
  Report Type: Spontaneous
  Country: PL (occurrence: PL)
  Receive Date: 20220505
  Receipt Date: 20220603
  Transmission Date: 20220721
  Serious: Yes (Hospitalization, Other)
  Sender: FDA-Public Use
  Company Number: PL-BELUPO-SafetyCase004048

PATIENT

DRUGS (18)
  1. DICLOFENAC SODIUM [Interacting]
     Active Substance: DICLOFENAC SODIUM
     Indication: Sacral pain
     Dosage: 150 MG, QD
     Route: 065
  2. DICLOFENAC SODIUM [Interacting]
     Active Substance: DICLOFENAC SODIUM
     Indication: Back pain
     Dosage: UNK
     Route: 065
  3. ACETAMINOPHEN\TRAMADOL [Suspect]
     Active Substance: ACETAMINOPHEN\TRAMADOL
     Indication: Back pain
     Dosage: 1 DF, BID(AT A DOSE OF 37.5 / 325 MG TWICE A DAY)
     Route: 065
  4. RAMIPRIL [Interacting]
     Active Substance: RAMIPRIL
     Indication: Hypertension
     Dosage: 10 MG, QD
     Route: 065
  5. SERTRALINE HYDROCHLORIDE [Interacting]
     Active Substance: SERTRALINE HYDROCHLORIDE
     Indication: Affective disorder
     Dosage: 50 MG (QD IN THE MORNING)
     Route: 065
  6. SERTRALINE HYDROCHLORIDE [Interacting]
     Active Substance: SERTRALINE HYDROCHLORIDE
     Indication: Insomnia
     Dosage: UNK
     Route: 065
  7. SERTRALINE HYDROCHLORIDE [Interacting]
     Active Substance: SERTRALINE HYDROCHLORIDE
     Indication: Anxiety
     Dosage: UNK
     Route: 065
  8. SERTRALINE HYDROCHLORIDE [Interacting]
     Active Substance: SERTRALINE HYDROCHLORIDE
     Indication: Depression
     Dosage: UNK
     Route: 065
  9. ALPRAZOLAM [Interacting]
     Active Substance: ALPRAZOLAM
     Indication: Anxiety
     Dosage: 1 MG, QD (PER NIGHT)
     Route: 065
  10. ALPRAZOLAM [Interacting]
     Active Substance: ALPRAZOLAM
     Indication: Affective disorder
     Dosage: UNK
     Route: 065
  11. ALPRAZOLAM [Interacting]
     Active Substance: ALPRAZOLAM
     Indication: Insomnia
     Dosage: UNK
     Route: 065
  12. ALPRAZOLAM [Interacting]
     Active Substance: ALPRAZOLAM
     Indication: Affective disorder
     Dosage: UNK
     Route: 065
  13. TADALAFIL [Interacting]
     Active Substance: TADALAFIL
     Indication: Erectile dysfunction
     Dosage: 10 MG (AS NEED)
     Route: 065
  14. ATORVASTATIN CALCIUM [Interacting]
     Active Substance: ATORVASTATIN CALCIUM
     Indication: Dyslipidaemia
     Dosage: 40 MG, QD
     Route: 065
  15. MORPHINE [Suspect]
     Active Substance: MORPHINE
     Indication: Analgesic therapy
     Dosage: 10 MG
     Route: 042
  16. KETOPROFEN [Suspect]
     Active Substance: KETOPROFEN
     Indication: Analgesic therapy
     Dosage: UNK
     Route: 065
  17. FUROSEMIDE [Concomitant]
     Active Substance: FUROSEMIDE
     Indication: Cardiac disorder
     Dosage: UNK
     Route: 065
  18. METOPROLOL [Concomitant]
     Active Substance: METOPROLOL
     Indication: Cardiac disorder
     Dosage: UNK
     Route: 065

REACTIONS (19)
  - Anorgasmia [Recovered/Resolved]
  - Back pain [Recovered/Resolved]
  - Blood pressure increased [Recovering/Resolving]
  - Drug ineffective [Unknown]
  - Drug interaction [Unknown]
  - Erectile dysfunction [Recovered/Resolved]
  - Drug level increased [Unknown]
  - Hyperaesthesia [Recovered/Resolved]
  - Pain [Unknown]
  - Tachycardia [Recovering/Resolving]
  - Tachypnoea [Recovering/Resolving]
  - Depression [Unknown]
  - Product use in unapproved indication [Unknown]
  - Condition aggravated [Recovered/Resolved]
  - Sacral pain [Recovered/Resolved]
  - Insomnia [Recovering/Resolving]
  - Affective disorder [Recovering/Resolving]
  - Neuralgia [Recovered/Resolved]
  - Ill-defined disorder [Unknown]
